FAERS Safety Report 24274162 (Version 1)
Quarter: 2024Q3

REPORT INFORMATION
  Report Type: Spontaneous
  Country: US (occurrence: US)
  Receive Date: 20240902
  Receipt Date: 20240902
  Transmission Date: 20241017
  Serious: No
  Sender: RECKITT BENCKISER
  Company Number: US-PROD-AS2-212756134-RB-084300-2024

PATIENT
  Sex: Male

DRUGS (3)
  1. MUCINEX [Suspect]
     Active Substance: GUAIFENESIN
     Indication: Asthma
     Dosage: UNK
     Route: 048
  2. MUCINEX [Suspect]
     Active Substance: GUAIFENESIN
     Indication: Bronchitis
  3. MUCINEX [Suspect]
     Active Substance: GUAIFENESIN
     Indication: Productive cough

REACTIONS (7)
  - Depressed mood [Not Recovered/Not Resolved]
  - Anxiety [Not Recovered/Not Resolved]
  - Anger [Not Recovered/Not Resolved]
  - Anger [Not Recovered/Not Resolved]
  - Defiant behaviour [Not Recovered/Not Resolved]
  - Abnormal behaviour [Not Recovered/Not Resolved]
  - Product use in unapproved indication [Not Recovered/Not Resolved]
